FAERS Safety Report 14607217 (Version 1)
Quarter: 2018Q1

REPORT INFORMATION
  Report Type: Spontaneous
  Country: JP (occurrence: JP)
  Receive Date: 20180307
  Receipt Date: 20180307
  Transmission Date: 20180509
  Serious: Yes (Death, Hospitalization)
  Sender: FDA-Public Use
  Company Number: JP-JNJFOC-20180305677

PATIENT
  Age: 57 Year
  Sex: Male

DRUGS (1)
  1. XARELTO [Suspect]
     Active Substance: RIVAROXABAN
     Indication: EMBOLISM VENOUS
     Route: 048
     Dates: start: 20171017, end: 20180116

REACTIONS (3)
  - Respiratory failure [Fatal]
  - Cerebral infarction [Recovered/Resolved]
  - Endocarditis noninfective [Recovering/Resolving]

NARRATIVE: CASE EVENT DATE: 20171214
